FAERS Safety Report 11752062 (Version 1)
Quarter: 2015Q4

REPORT INFORMATION
  Report Type: Spontaneous
  Country: US (occurrence: US)
  Receive Date: 20151118
  Receipt Date: 20151118
  Transmission Date: 20160304
  Serious: No
  Sender: FDA-Public Use
  Company Number: US-UCBSA-2014023034

PATIENT
  Age: 72 Year
  Sex: Female

DRUGS (1)
  1. GLYCOLAX [Suspect]
     Active Substance: POLYETHYLENE GLYCOL 3350
     Indication: CONSTIPATION
     Dosage: ONCE DAILY (QD)
     Dates: start: 20141223

REACTIONS (1)
  - Vomiting [Unknown]

NARRATIVE: CASE EVENT DATE: 20141223
